FAERS Safety Report 7385743-2 (Version None)
Quarter: 2011Q1

REPORT INFORMATION
  Report Type: 
  Country: None (occurrence: None)
  Receive Date: 20110331
  Receipt Date: 20110328
  Transmission Date: 20110831
  Serious: No
  Sender: FDA-Public Use
  Company Number: CA-BAYER-2011-023603

PATIENT
  Sex: Female

DRUGS (4)
  1. YASMIN 21 [Suspect]
     Indication: PREMENSTRUAL SYNDROME
     Dosage: UNK
     Route: 048
     Dates: start: 20101101, end: 20110312
  2. ELMIRON [Concomitant]
     Indication: CYSTITIS
  3. ATARAX [Concomitant]
  4. MACROBID [Concomitant]

REACTIONS (2)
  - FEELING HOT [None]
  - PAIN IN EXTREMITY [None]
